FAERS Safety Report 6454270-9 (Version None)
Quarter: 2009Q4

REPORT INFORMATION
  Report Type: 
  Country: None (occurrence: None)
  Receive Date: 20091117
  Receipt Date: 20091105
  Transmission Date: 20100525
  Serious: Yes (Hospitalization)
  Sender: FDA-Public Use
  Company Number: 901028435-AKO-4986-AE

PATIENT

DRUGS (1)
  1. GENTAK [Suspect]
     Dosage: OPHTHALMIC
     Route: 047
     Dates: start: 20091104

REACTIONS (5)
  - DERMATITIS CONTACT [None]
  - ERYTHEMA [None]
  - RASH PUSTULAR [None]
  - SKIN REACTION [None]
  - SWELLING [None]
